FAERS Safety Report 5519901-6 (Version None)
Quarter: 2007Q4

REPORT INFORMATION
  Report Type: 
  Country: None (occurrence: None)
  Receive Date: 20071116
  Receipt Date: 20071012
  Transmission Date: 20080405
  Serious: No
  Sender: FDA-Public Use
  Company Number: A0688042A

PATIENT

DRUGS (1)
  1. COREG CR [Suspect]
     Indication: DRUG USE FOR UNKNOWN INDICATION
     Dosage: 85MG PER DAY
     Route: 048
     Dates: start: 20071001

REACTIONS (4)
  - ASTHENIA [None]
  - FATIGUE [None]
  - FEELING HOT [None]
  - THERAPEUTIC RESPONSE DECREASED [None]
